FAERS Safety Report 13539044 (Version 2)
Quarter: 2017Q2

REPORT INFORMATION
  Report Type: Spontaneous
  Country: JP (occurrence: JP)
  Receive Date: 20170512
  Receipt Date: 20170519
  Transmission Date: 20170830
  Serious: Yes (Hospitalization, Other)
  Sender: FDA-Public Use
  Company Number: PHJP2017JP015523

PATIENT
  Age: 52 Year
  Sex: Female

DRUGS (2)
  1. GILENYA [Suspect]
     Active Substance: FINGOLIMOD HYDROCHLORIDE
     Indication: MULTIPLE SCLEROSIS
     Dosage: UNK
     Route: 048
     Dates: start: 20160607
  2. GILENYA [Suspect]
     Active Substance: FINGOLIMOD HYDROCHLORIDE
     Dosage: UNK, ONCE EVERY THREE DAYS
     Route: 048
     Dates: end: 201705

REACTIONS (5)
  - Malaise [Recovered/Resolved]
  - Prescribed underdose [Unknown]
  - Multiple sclerosis relapse [Unknown]
  - Lymphocyte count decreased [Recovering/Resolving]
  - Sensory disturbance [Recovered/Resolved]

NARRATIVE: CASE EVENT DATE: 201705
